FAERS Safety Report 7077512-8 (Version None)
Quarter: 2010Q4

REPORT INFORMATION
  Report Type: 
  Country: None (occurrence: None)
  Receive Date: 20101025
  Receipt Date: 20101007
  Transmission Date: 20110411
  Serious: Yes (Other)
  Sender: FDA-Public Use
  Company Number: 20109434

PATIENT
  Sex: Female

DRUGS (3)
  1. LIORESAL [Suspect]
     Indication: MUSCLE SPASTICITY
     Dosage: UNK MCG, DAILY, INTRATHECAL
     Route: 037
  2. DILAUDID [Concomitant]
  3. CLONIDINE [Concomitant]

REACTIONS (2)
  - DRUG HYPERSENSITIVITY [None]
  - RASH ERYTHEMATOUS [None]
